FAERS Safety Report 16719462 (Version 1)
Quarter: 2019Q3

REPORT INFORMATION
  Report Type: Spontaneous
  Country: GB (occurrence: GB)
  Receive Date: 20190820
  Receipt Date: 20190820
  Transmission Date: 20191005
  Serious: Yes (Hospitalization)
  Sender: FDA-Public Use
  Company Number: GB-AUROBINDO-AUR-APL-2019-054868

PATIENT

DRUGS (8)
  1. DEXAMETHASONE. [Suspect]
     Active Substance: DEXAMETHASONE
     Indication: PLASMA CELL MYELOMA
     Dosage: 40 MILLIGRAM, 3 WEEK MOST RECENT DRUG PERFORMED ON 03-MAY-2019
     Route: 048
     Dates: start: 20190212
  2. LENALIDOMIDE [Suspect]
     Active Substance: LENALIDOMIDE
     Indication: PLASMA CELL MYELOMA
     Dosage: 25 MILLIGRAM, MOST RECENT DRUG PERFORMED ON 06-MAY-2019
     Route: 048
     Dates: start: 20190212
  3. CYCLOPHOSPHAMIDE. [Suspect]
     Active Substance: CYCLOPHOSPHAMIDE
     Indication: PLASMA CELL MYELOMA
     Dosage: MOST RECENT DRUG PERFORMED ON 30-APR-2019
     Route: 048
     Dates: start: 20190212
  4. BORTEZOMIB. [Suspect]
     Active Substance: BORTEZOMIB
     Indication: PLASMA CELL MYELOMA
     Dosage: 2.25 MILLIGRAM, EVERY WEEK
     Route: 058
     Dates: start: 20190212, end: 20190719
  5. DARATUMUMAB [Suspect]
     Active Substance: DARATUMUMAB
     Indication: PLASMA CELL MYELOMA
     Dosage: 1200 MILLIGRAM, 3 WEEK, MOST RECENT DRUG PERFORMED ON 23-APR-2019
     Route: 042
     Dates: start: 20190212
  6. MELPHALAN. [Suspect]
     Active Substance: MELPHALAN
     Indication: PLASMA CELL MYELOMA
     Dosage: 345 MICROGRAM, ONCE A DAY
     Route: 042
     Dates: start: 20190704
  7. FILGRASTIM [Suspect]
     Active Substance: FILGRASTIM
     Indication: PLASMA CELL MYELOMA
     Dosage: 480 MICROGRAM, MOST RECENT DRUG PERFORMED ON 24-MAY-2019
     Route: 058
     Dates: start: 20190617
  8. CYCLOPHOSPHAMIDE. [Suspect]
     Active Substance: CYCLOPHOSPHAMIDE
     Indication: PLASMA CELL MYELOMA
     Dosage: 534 MILLIGRAM, ONCE A DAY
     Route: 042
     Dates: start: 20190613

REACTIONS (1)
  - Infection [Not Recovered/Not Resolved]

NARRATIVE: CASE EVENT DATE: 20190802
